FAERS Safety Report 18566598 (Version 1)
Quarter: 2020Q4

REPORT INFORMATION
  Report Type: Report from Study
  Country: AR (occurrence: AR)
  Receive Date: 20201201
  Receipt Date: 20201201
  Transmission Date: 20210114
  Serious: Yes (Life-Threatening, Other)
  Sender: FDA-Public Use
  Company Number: NVSC2020AR319795

PATIENT
  Age: 95 Year
  Sex: Female

DRUGS (2)
  1. DIOVAN [Suspect]
     Active Substance: VALSARTAN
     Indication: PRODUCT USED FOR UNKNOWN INDICATION
     Dosage: UNK UNK, QD
     Route: 065
  2. DIOVAN [Suspect]
     Active Substance: VALSARTAN
     Dosage: UNK UNK, BID
     Route: 065

REACTIONS (14)
  - Chest pain [Unknown]
  - Hypersensitivity [Unknown]
  - Haemorrhage [Unknown]
  - Photosensitivity reaction [Unknown]
  - Infarction [Unknown]
  - Fall [Unknown]
  - Near death experience [Unknown]
  - Head injury [Unknown]
  - Anger [Unknown]
  - Balance disorder [Unknown]
  - Food allergy [Unknown]
  - Nervousness [Unknown]
  - Feeling abnormal [Unknown]
  - Inappropriate schedule of product administration [Unknown]
